FAERS Safety Report 6833498-X (Version None)
Quarter: 2010Q3

REPORT INFORMATION
  Report Type: 
  Country: None (occurrence: None)
  Receive Date: 20100712
  Receipt Date: 20070326
  Transmission Date: 20110219
  Serious: Yes (Other)
  Sender: FDA-Public Use
  Company Number: US-PFIZER INC-2007025763

PATIENT
  Sex: Female
  Weight: 68.04 kg

DRUGS (10)
  1. CHANTIX [Suspect]
     Indication: SMOKING CESSATION THERAPY
     Dates: start: 20070101
  2. VICODIN [Concomitant]
  3. LIPITOR [Concomitant]
  4. SEROQUEL [Concomitant]
  5. NEXIUM [Concomitant]
  6. LISINOPRIL [Concomitant]
  7. TRICOR [Concomitant]
  8. FLEXERIL [Concomitant]
  9. PROMETHAZINE [Concomitant]
  10. XANAX [Concomitant]

REACTIONS (4)
  - ANXIETY [None]
  - PRURITUS [None]
  - RASH [None]
  - TOOTH EXTRACTION [None]
